FAERS Safety Report 6630894-0 (Version None)
Quarter: 2010Q1

REPORT INFORMATION
  Report Type: 
  Country: None (occurrence: None)
  Receive Date: 20100311
  Receipt Date: 20100302
  Transmission Date: 20100710
  Serious: Yes (Other)
  Sender: FDA-Public Use
  Company Number: AT-GILEAD-2010-0027474

PATIENT
  Sex: Male
  Weight: 100 kg

DRUGS (7)
  1. VIREAD [Suspect]
     Indication: HEPATITIS B E ANTIGEN NEGATIVE
  2. APREDNISLON [Concomitant]
     Indication: IMMUNOSUPPRESSION
  3. VALCYTE [Concomitant]
     Indication: CYTOMEGALOVIRUS INFECTION
     Route: 048
  4. PANTOPRAZOLE [Concomitant]
  5. CALCIUM [Concomitant]
  6. MESALAZINE KLYSMA [Concomitant]
  7. PREDNISONE [Concomitant]

REACTIONS (4)
  - BLOOD CREATININE INCREASED [None]
  - CYTOMEGALOVIRUS INFECTION [None]
  - NEPHROLITHIASIS [None]
  - RENAL TUBULAR ACIDOSIS [None]
